FAERS Safety Report 5485890-6 (Version None)
Quarter: 2007Q4

REPORT INFORMATION
  Report Type: 
  Country: None (occurrence: None)
  Receive Date: 20071015
  Receipt Date: 20071009
  Transmission Date: 20080405
  Serious: Yes (Other)
  Sender: FDA-Public Use
  Company Number: ES-ROXANE LABORATORIES, INC-2007-BP-22399RO

PATIENT
  Age: 64 Year
  Sex: Male

DRUGS (4)
  1. PREDNISONE [Suspect]
     Indication: IMMUNOSUPPRESSION
  2. TACROLIMUS [Suspect]
     Indication: IMMUNOSUPPRESSION
  3. MYCOPHENOLATE MOFETIL [Suspect]
     Indication: IMMUNOSUPPRESSION
  4. ITRACONAZOLE [Concomitant]
     Indication: ALTERNARIA INFECTION

REACTIONS (5)
  - ALTERNARIA INFECTION [None]
  - HAEMORRHAGE [None]
  - HYPERPLASIA [None]
  - SCAB [None]
  - SKIN PAPILLOMA [None]
